FAERS Safety Report 5806862-5 (Version None)
Quarter: 2008Q3

REPORT INFORMATION
  Report Type: 
  Country: None (occurrence: None)
  Receive Date: 20080711
  Receipt Date: 20080702
  Transmission Date: 20090109
  Serious: Yes (Death, Life-Threatening, Hospitalization)
  Sender: FDA-Public Use
  Company Number: NL-JNJFOC-20050901187

PATIENT
  Sex: Female
  Weight: 62.6 kg

DRUGS (6)
  1. INFLIXIMAB [Suspect]
     Route: 042
  2. INFLIXIMAB [Suspect]
     Route: 042
  3. INFLIXIMAB [Suspect]
     Indication: CROHN'S DISEASE
     Route: 042
  4. IMURAN [Concomitant]
     Indication: CROHN'S DISEASE
     Route: 065
  5. SALOFALK [Concomitant]
     Route: 065
  6. VITAMIN B AND C [Concomitant]
     Route: 065

REACTIONS (2)
  - COLON NEOPLASM [None]
  - OVARIAN CANCER [None]
